FAERS Safety Report 25664781 (Version 1)
Quarter: 2025Q3

REPORT INFORMATION
  Report Type: Spontaneous
  Country: US (occurrence: None)
  Receive Date: 20250809
  Receipt Date: 20250809
  Transmission Date: 20251020
  Serious: Yes (Life-Threatening, Hospitalization)
  Sender: FDA-CTU
  Company Number: None

PATIENT
  Age: 55 Year
  Sex: Male
  Weight: 87.75 kg

DRUGS (1)
  1. HERBALS [Suspect]
     Active Substance: HERBALS
     Indication: Pain
     Route: 048
     Dates: start: 20241108, end: 20250730

REACTIONS (9)
  - Drug dependence [None]
  - Tremor [None]
  - Hyperhidrosis [None]
  - Feeling cold [None]
  - Panic attack [None]
  - Anxiety [None]
  - Feeling abnormal [None]
  - Withdrawal syndrome [None]
  - Quality of life decreased [None]

NARRATIVE: CASE EVENT DATE: 20250731
